FAERS Safety Report 5033209-7 (Version None)
Quarter: 2006Q2

REPORT INFORMATION
  Report Type: 
  Country: None (occurrence: None)
  Receive Date: 20060620
  Receipt Date: 20060612
  Transmission Date: 20061013
  Serious: Yes (Life-Threatening, Hospitalization)
  Sender: FDA-Public Use
  Company Number: S06-USA-02303-01

PATIENT
  Age: 36 Year
  Sex: Female
  Weight: 53.5 kg

DRUGS (8)
  1. CELEXA [Suspect]
     Indication: DEPRESSION
     Dosage: 20 TABLET ONCE PO
     Route: 048
     Dates: start: 20050704, end: 20050704
  2. CELEXA [Suspect]
     Indication: DEPRESSION
     Dosage: 30 MG QD PO
     Route: 048
     Dates: start: 20020101
  3. XANAX [Suspect]
     Dosage: 15 TABLET ONCE PO
     Route: 048
     Dates: start: 20050704, end: 20050704
  4. XANAX [Suspect]
  5. REBIF [Suspect]
     Indication: MULTIPLE SCLEROSIS
     Dosage: 44 MCG TIW SC
     Route: 058
     Dates: start: 20020601, end: 20050701
  6. TOPAMAX [Suspect]
     Indication: TREMOR
     Dosage: 100 MG BID PO
     Route: 048
     Dates: start: 20021101, end: 20050701
  7. BACLOFEN [Concomitant]
  8. WELLBUTRIN [Concomitant]

REACTIONS (6)
  - ACUTE PSYCHOSIS [None]
  - HALLUCINATION, AUDITORY [None]
  - LOSS OF CONSCIOUSNESS [None]
  - MAJOR DEPRESSION [None]
  - OVERDOSE [None]
  - SOMNOLENCE [None]
